FAERS Safety Report 5284217-2 (Version None)
Quarter: 2007Q1

REPORT INFORMATION
  Report Type: 
  Country: None (occurrence: None)
  Receive Date: 20070328
  Receipt Date: 20070220
  Transmission Date: 20070707
  Serious: Yes (Other)
  Sender: FDA-Public Use
  Company Number: SPV1-2007-00842

PATIENT
  Age: 8 Year
  Sex: Female
  Weight: 54.4 kg

DRUGS (10)
  1. ADDERALL XR 10 [Suspect]
     Indication: AFFECTIVE DISORDER
     Dosage: 30 MG, 1X/DAY;QD, ORAL
     Route: 048
  2. ADDERALL XR 10 [Suspect]
     Indication: ATTENTION DEFICIT/HYPERACTIVITY DISORDER
     Dosage: 30 MG, 1X/DAY;QD, ORAL
     Route: 048
  3. ADDERALL (AMPHETAMINE ASPARTARE, AMPHETAMINE SULFATE, DEXTROAMPHETAMIN [Suspect]
     Indication: AFFECTIVE DISORDER
     Dosage: SEE IMAGE
     Route: 048
     Dates: end: 20061001
  4. ADDERALL (AMPHETAMINE ASPARTARE, AMPHETAMINE SULFATE, DEXTROAMPHETAMIN [Suspect]
     Indication: ATTENTION DEFICIT/HYPERACTIVITY DISORDER
     Dosage: SEE IMAGE
     Route: 048
     Dates: end: 20061001
  5. ADDERALL (AMPHETAMINE ASPARTARE, AMPHETAMINE SULFATE, DEXTROAMPHETAMIN [Suspect]
     Indication: AFFECTIVE DISORDER
     Dosage: SEE IMAGE
     Route: 048
     Dates: start: 20000215
  6. ADDERALL (AMPHETAMINE ASPARTARE, AMPHETAMINE SULFATE, DEXTROAMPHETAMIN [Suspect]
     Indication: ATTENTION DEFICIT/HYPERACTIVITY DISORDER
     Dosage: SEE IMAGE
     Route: 048
     Dates: start: 20000215
  7. STRATTERA [Concomitant]
  8. RITALIN [Concomitant]
  9. RISPERDAL [Concomitant]
  10. CLONIDINE [Concomitant]

REACTIONS (13)
  - ABDOMINAL PAIN UPPER [None]
  - BLOOD PRESSURE DECREASED [None]
  - CHEST PAIN [None]
  - CONVULSION [None]
  - DIZZINESS [None]
  - HYPERTHYROIDISM [None]
  - INSOMNIA [None]
  - RESTLESSNESS [None]
  - SUICIDAL IDEATION [None]
  - SUICIDE ATTEMPT [None]
  - TACHYCARDIA [None]
  - TREMOR [None]
  - WEIGHT DECREASED [None]
